FAERS Safety Report 10474854 (Version 2)
Quarter: 2014Q3

REPORT INFORMATION
  Report Type: Spontaneous
  Country: DE (occurrence: DE)
  Receive Date: 20140925
  Receipt Date: 20140925
  Transmission Date: 20150326
  Serious: Yes (Other)
  Sender: FDA-Public Use
  Company Number: DE-BIOGENIDEC-2014BI008432

PATIENT
  Age: 58 Year
  Sex: Male

DRUGS (2)
  1. TYSABRI [Suspect]
     Active Substance: NATALIZUMAB
     Indication: MULTIPLE SCLEROSIS
     Route: 042
     Dates: start: 20100909, end: 20140109
  2. FAMPYRA [Concomitant]
     Active Substance: DALFAMPRIDINE
     Indication: WALKING DISABILITY
     Dates: start: 20120216

REACTIONS (6)
  - Quadriparesis [Unknown]
  - Chills [Recovered/Resolved]
  - Anti-interferon antibody [Not Recovered/Not Resolved]
  - Multiple sclerosis relapse [Recovered/Resolved]
  - Drug ineffective [Unknown]
  - Drug specific antibody present [Unknown]

NARRATIVE: CASE EVENT DATE: 201305
